FAERS Safety Report 19923692 (Version 1)
Quarter: 2021Q4

REPORT INFORMATION
  Report Type: Spontaneous
  Country: US (occurrence: US)
  Receive Date: 20211005
  Receipt Date: 20211005
  Transmission Date: 20220303
  Serious: No
  Sender: FDA-Public Use
  Company Number: None

PATIENT
  Age: 81 Year
  Sex: Female

DRUGS (2)
  1. AFINITOR [Suspect]
     Active Substance: EVEROLIMUS
     Indication: Carcinoid tumour
     Route: 048
     Dates: start: 202110, end: 202110
  2. AFINITOR [Suspect]
     Active Substance: EVEROLIMUS
     Indication: Small intestine carcinoma

REACTIONS (2)
  - Lower limb fracture [None]
  - Therapy interrupted [None]

NARRATIVE: CASE EVENT DATE: 20211005
